FAERS Safety Report 22378248 (Version 1)
Quarter: 2023Q2

REPORT INFORMATION
  Report Type: Spontaneous
  Country: US (occurrence: US)
  Receive Date: 20230529
  Receipt Date: 20230529
  Transmission Date: 20230721
  Serious: No
  Sender: FDA-Public Use
  Company Number: US-BAXTER-2023BAX022623

PATIENT
  Sex: Male

DRUGS (2)
  1. NEXTERONE [Suspect]
     Active Substance: AMIODARONE HYDROCHLORIDE
     Dosage: 800 MG AT UNSPECIFIED FREQUENCY
     Route: 065
  2. NEXTERONE [Suspect]
     Active Substance: AMIODARONE HYDROCHLORIDE
     Dosage: 100 MG AT UNSPECIFIED FREQUENCY
     Route: 065
     Dates: end: 202208

REACTIONS (1)
  - Anxiety [Unknown]
